FAERS Safety Report 15800876 (Version 1)
Quarter: 2019Q1

REPORT INFORMATION
  Report Type: Spontaneous
  Country: CA (occurrence: CA)
  Receive Date: 20190109
  Receipt Date: 20190109
  Transmission Date: 20190417
  Serious: Yes (Other)
  Sender: FDA-Public Use
  Company Number: CA-PFIZER INC-2019005831

PATIENT

DRUGS (1)
  1. EPINEPHRINE/LIDOCAINE HYDROCHLORIDE [Suspect]
     Active Substance: EPINEPHRINE\LIDOCAINE HYDROCHLORIDE
     Indication: LOCAL ANAESTHESIA
     Dosage: 2 DF, SINGLE (ONCE)
     Route: 004

REACTIONS (5)
  - Injection site necrosis [Unknown]
  - Pyrexia [Unknown]
  - Rash [Unknown]
  - Vestibular disorder [Unknown]
  - Oral mucosal exfoliation [Unknown]
